FAERS Safety Report 24620914 (Version 1)
Quarter: 2024Q4

REPORT INFORMATION
  Report Type: Report from Study
  Country: MX (occurrence: MX)
  Receive Date: 20241114
  Receipt Date: 20241114
  Transmission Date: 20250114
  Serious: Yes (Other)
  Sender: NOVARTIS
  Company Number: MX-002147023-NVSC2024MX216877

PATIENT
  Sex: Female
  Weight: 62 kg

DRUGS (5)
  1. IMATINIB [Suspect]
     Active Substance: IMATINIB
     Indication: Product used for unknown indication
     Dosage: UNK
     Route: 065
  2. TASIGNA [Suspect]
     Active Substance: NILOTINIB
     Indication: Chronic myeloid leukaemia
     Dosage: 1 DOSAGE FORM, QD
     Route: 048
     Dates: start: 2004, end: 201412
  3. TASIGNA [Suspect]
     Active Substance: NILOTINIB
     Dosage: 2 DOSAGE FORM, Q12H (200 MG)
     Route: 048
     Dates: start: 201412
  4. CLONAZEPAM [Concomitant]
     Active Substance: CLONAZEPAM
     Indication: Anxiety
     Dosage: 2 DOSAGE FORM, QD (PILLS AND TABLETS)
     Route: 048
     Dates: start: 2021
  5. ESCITALOPRAM [Concomitant]
     Active Substance: ESCITALOPRAM OXALATE
     Indication: Anxiety
     Dosage: 0.5 DOSAGE FORM, QD
     Route: 048
     Dates: start: 2021

REACTIONS (23)
  - Gastric ulcer [Recovered/Resolved]
  - Hip fracture [Recovered/Resolved]
  - Deafness [Not Recovered/Not Resolved]
  - Hypothyroidism [Not Recovered/Not Resolved]
  - Spinal cord injury [Recovered/Resolved]
  - Spinal cord injury [Recovered/Resolved]
  - Syncope [Recovered/Resolved]
  - Fall [Recovered/Resolved]
  - Dizziness [Not Recovered/Not Resolved]
  - Renal disorder [Not Recovered/Not Resolved]
  - Urinary tract infection [Not Recovered/Not Resolved]
  - Cardiomegaly [Not Recovered/Not Resolved]
  - Weight decreased [Recovered/Resolved]
  - Bone pain [Recovered/Resolved]
  - Blood pressure decreased [Recovered/Resolved]
  - Spinal column injury [Recovered/Resolved]
  - Joint injury [Recovered/Resolved]
  - Hernia [Recovered/Resolved]
  - Accident [Recovered/Resolved]
  - Fall [Recovered/Resolved]
  - Fall [Recovered/Resolved]
  - Contusion [Recovered/Resolved]
  - Off label use [Unknown]

NARRATIVE: CASE EVENT DATE: 20040101
